FAERS Safety Report 5793356-9 (Version None)
Quarter: 2008Q2

REPORT INFORMATION
  Report Type: 
  Country: None (occurrence: None)
  Receive Date: 20080627
  Receipt Date: 20080624
  Transmission Date: 20081010
  Serious: Yes (Life-Threatening, Hospitalization)
  Sender: FDA-Public Use
  Company Number: B0522474A

PATIENT
  Age: 2 Year
  Sex: Male
  Weight: 11 kg

DRUGS (2)
  1. AUGMENTIN '125' [Suspect]
     Indication: OTITIS MEDIA
     Route: 048
     Dates: start: 20080221, end: 20080223
  2. NO CONCURRENT MEDICATION [Concomitant]

REACTIONS (8)
  - ACUTE HEPATIC FAILURE [None]
  - CONFUSIONAL STATE [None]
  - HEPATIC ENZYME INCREASED [None]
  - HYPERTROPHY [None]
  - LIVER TRANSPLANT [None]
  - OTITIS MEDIA [None]
  - PYREXIA [None]
  - VOMITING [None]
